FAERS Safety Report 9688121 (Version 1)
Quarter: 2013Q4

REPORT INFORMATION
  Report Type: Spontaneous
  Country: CN (occurrence: CN)
  Receive Date: 20131114
  Receipt Date: 20131114
  Transmission Date: 20140711
  Serious: Yes (Hospitalization)
  Sender: FDA-Public Use
  Company Number: CN-MYLANLABS-2013S1025222

PATIENT
  Age: 49 Year
  Sex: Female

DRUGS (6)
  1. LORAZEPAM [Suspect]
     Dosage: 2MG AT NIGHT
     Route: 065
  2. ZOLPIDEM [Suspect]
     Dosage: 50MG AT NIGHT
     Route: 065
  3. GLICLAZIDE [Concomitant]
     Route: 065
  4. METOPROLOL [Concomitant]
     Route: 065
  5. CHLORPROMAZINE [Concomitant]
     Route: 065
  6. FLUOXETINE [Concomitant]
     Route: 065

REACTIONS (3)
  - Overdose [Unknown]
  - Stress cardiomyopathy [Recovering/Resolving]
  - Drug withdrawal syndrome [Recovering/Resolving]
